FAERS Safety Report 9954526 (Version 1)
Quarter: 2014Q1

REPORT INFORMATION
  Report Type: Spontaneous
  Country: US (occurrence: US)
  Receive Date: 20140304
  Receipt Date: 20140304
  Transmission Date: 20141002
  Serious: No
  Sender: FDA-Public Use
  Company Number: US-ABBVIE-13P-163-1082860-00

PATIENT
  Age: 59 Year
  Sex: Female
  Weight: 81.72 kg

DRUGS (7)
  1. HUMIRA [Suspect]
     Indication: CROHN^S DISEASE
     Route: 058
     Dates: start: 200906, end: 201006
  2. HUMIRA [Suspect]
     Route: 058
  3. AMBIEN [Concomitant]
     Indication: INSOMNIA
  4. I FEREX [Concomitant]
     Indication: VITAMIN SUPPLEMENTATION
  5. SPIRONOLACTONE [Concomitant]
     Indication: PRODUCT USED FOR UNKNOWN INDICATION
  6. POTASSIUM CHLORIDE [Concomitant]
     Indication: MINERAL SUPPLEMENTATION
  7. MINIPRESS [Concomitant]
     Indication: HYPERTENSION

REACTIONS (1)
  - Hypoaesthesia [Not Recovered/Not Resolved]
